FAERS Safety Report 21805214 (Version 1)
Quarter: 2023Q1

REPORT INFORMATION
  Report Type: Spontaneous
  Country: DE (occurrence: DE)
  Receive Date: 20230102
  Receipt Date: 20230102
  Transmission Date: 20230418
  Serious: Yes (Death, Other)
  Sender: FDA-Public Use
  Company Number: DE-PEI-CADR2022312155

PATIENT
  Age: 62 Year
  Sex: Female
  Weight: 70 kg

DRUGS (5)
  1. DOCETAXEL [Suspect]
     Active Substance: DOCETAXEL
     Indication: Alopecia
     Dosage: UNK
     Route: 042
     Dates: start: 20220802, end: 20221005
  2. CYRAMZA [Suspect]
     Active Substance: RAMUCIRUMAB
     Indication: Colorectal cancer stage I
     Dosage: UNK
     Route: 042
     Dates: start: 20220802, end: 20221005
  3. CYRAMZA [Suspect]
     Active Substance: RAMUCIRUMAB
     Indication: Gastric cancer
  4. CYRAMZA [Suspect]
     Active Substance: RAMUCIRUMAB
     Indication: Lung neoplasm malignant
  5. CYRAMZA [Suspect]
     Active Substance: RAMUCIRUMAB
     Indication: Hepatocellular carcinoma

REACTIONS (1)
  - Pneumonitis [Fatal]

NARRATIVE: CASE EVENT DATE: 20221127
